FAERS Safety Report 8540490-6 (Version None)
Quarter: 2012Q3

REPORT INFORMATION
  Report Type: 
  Country: None (occurrence: None)
  Receive Date: 20120726
  Receipt Date: 20110817
  Transmission Date: 20120928
  Serious: No
  Sender: FDA-Public Use
  Company Number: US-ASTRAZENECA-2011SE47183

PATIENT
  Age: 46 Year
  Sex: Female
  Weight: 167.8 kg

DRUGS (16)
  1. LORTAB [Concomitant]
  2. SEROQUEL XR [Suspect]
     Route: 048
  3. SEROQUEL XR [Suspect]
     Route: 048
  4. METOPROLOL TARTRATE [Concomitant]
  5. ZANTAC [Concomitant]
  6. LASIX [Concomitant]
  7. SEROQUEL XR [Suspect]
     Route: 048
     Dates: start: 20110701
  8. DILTIAZEM [Concomitant]
  9. METFORMIN HYDROCHLORIDE [Concomitant]
  10. POTASSIUM CHLORIDE [Concomitant]
  11. XANAX [Concomitant]
  12. SEROQUEL XR [Suspect]
     Indication: DEPRESSION
     Route: 048
  13. SEROQUEL XR [Suspect]
     Indication: BIPOLAR DISORDER
     Route: 048
  14. SEROQUEL XR [Suspect]
     Route: 048
     Dates: start: 20110701
  15. ASPIRIN [Concomitant]
  16. PRESTIQUE [Concomitant]

REACTIONS (8)
  - BLOOD GLUCOSE INCREASED [None]
  - INSOMNIA [None]
  - NIGHTMARE [None]
  - GASTROENTERITIS VIRAL [None]
  - WEIGHT INCREASED [None]
  - ADVERSE DRUG REACTION [None]
  - SOMNOLENCE [None]
  - DRUG DOSE OMISSION [None]
